FAERS Safety Report 7793695-6 (Version None)
Quarter: 2011Q4

REPORT INFORMATION
  Report Type: 
  Country: None (occurrence: None)
  Receive Date: 20111003
  Receipt Date: 20110923
  Transmission Date: 20120403
  Serious: Yes (Other)
  Sender: FDA-Public Use
  Company Number: AU-B.I. PHARMACEUTICALS,INC./RIDGEFIELD-2011-AU-01546AU

PATIENT
  Sex: Female

DRUGS (4)
  1. MICARDIS [Suspect]
  2. CARDIPRIN [Concomitant]
  3. LIPITOR [Concomitant]
  4. MOBIC [Suspect]
     Indication: PAIN IN EXTREMITY

REACTIONS (2)
  - CARDIAC FAILURE [None]
  - OEDEMA PERIPHERAL [None]
